FAERS Safety Report 6525479-0 (Version None)
Quarter: 2010Q1

REPORT INFORMATION
  Report Type: 
  Country: None (occurrence: None)
  Receive Date: 20100104
  Receipt Date: 20091223
  Transmission Date: 20100710
  Serious: Yes (Other)
  Sender: FDA-Public Use
  Company Number: US-ELI_LILLY_AND_COMPANY-US200911003986

PATIENT
  Sex: Female

DRUGS (4)
  1. FORTEO [Suspect]
  2. CALCIUM                                 /N/A/ [Concomitant]
  3. ACETAMINOPHEN [Concomitant]
     Dosage: OCCASIONAL USE
  4. VITAMINS [Concomitant]

REACTIONS (2)
  - FALL [None]
  - HIP FRACTURE [None]
